FAERS Safety Report 8051088-0 (Version None)
Quarter: 2012Q1

REPORT INFORMATION
  Report Type: 
  Country: None (occurrence: None)
  Receive Date: 20120117
  Receipt Date: 20120103
  Transmission Date: 20120608
  Serious: Yes (Other)
  Sender: FDA-Public Use
  Company Number: HU-PFIZER INC-2012001906

PATIENT
  Age: 66 Year
  Sex: Female
  Weight: 84 kg

DRUGS (6)
  1. RAMIPRIL [Concomitant]
     Dosage: UNK
     Dates: start: 20060101
  2. BISOPROLOL FUMARATE [Concomitant]
     Dosage: UNK
     Dates: start: 20010101
  3. FENOFIBRATE [Concomitant]
     Dosage: 160MG
     Dates: start: 20100101
  4. LYRICA [Suspect]
     Indication: NEURALGIA
     Dosage: 75 MG, 1X/DAY
     Dates: start: 20110301, end: 20111101
  5. INSULIN [Concomitant]
     Dosage: UNK
     Dates: start: 20010101
  6. QUAMATEL [Concomitant]
     Dosage: UNK
     Dates: start: 20100101

REACTIONS (1)
  - ANOSMIA [None]
